FAERS Safety Report 6299126-X (Version None)
Quarter: 2009Q3

REPORT INFORMATION
  Report Type: 
  Country: None (occurrence: None)
  Receive Date: 20090806
  Receipt Date: 20090730
  Transmission Date: 20100115
  Serious: Yes (Hospitalization)
  Sender: FDA-Public Use
  Company Number: JP-BRISTOL-MYERS SQUIBB COMPANY-14727358

PATIENT
  Age: 70 Year
  Sex: Male

DRUGS (2)
  1. TAXOL [Suspect]
     Indication: SALIVARY GLAND CANCER
     Route: 041
  2. PARAPLATIN [Suspect]
     Indication: SALIVARY GLAND CANCER
     Dosage: 1 DOSAGE FORM = AUC 6
     Route: 041

REACTIONS (1)
  - HYPONATRAEMIA [None]
